FAERS Safety Report 4591123-5 (Version None)
Quarter: 2005Q1

REPORT INFORMATION
  Report Type: 
  Country: None (occurrence: None)
  Receive Date: 20050225
  Receipt Date: 20050124
  Transmission Date: 20050727
  Serious: Yes (Other)
  Sender: FDA-Public Use
  Company Number: PHFR2005GB00698

PATIENT
  Age: 70 Year
  Sex: Female

DRUGS (3)
  1. ESTRADERM [Suspect]
     Indication: HORMONE REPLACEMENT THERAPY
     Route: 062
  2. ADCAL-D3 [Concomitant]
     Dosage: 200MG/DAY
     Route: 048
  3. LOSEC [Concomitant]
     Indication: DYSPEPSIA
     Dosage: 10 MG/DAY
     Route: 048

REACTIONS (2)
  - ARTHRALGIA [None]
  - DRUG WITHDRAWAL SYNDROME [None]
